FAERS Safety Report 23554950 (Version 9)
Quarter: 2025Q2

REPORT INFORMATION
  Report Type: Spontaneous
  Country: US (occurrence: US)
  Receive Date: 20240222
  Receipt Date: 20250418
  Transmission Date: 20250717
  Serious: No
  Sender: PFIZER
  Company Number: US-PFIZER INC-202400044641

PATIENT
  Age: 55 Year
  Sex: Female

DRUGS (7)
  1. IBRANCE [Suspect]
     Active Substance: PALBOCICLIB
     Indication: Breast cancer female
  2. IBRANCE [Suspect]
     Active Substance: PALBOCICLIB
     Indication: Agranulocytosis
  3. IBRANCE [Suspect]
     Active Substance: PALBOCICLIB
     Indication: Chemotherapy
     Route: 048
  4. IBRANCE [Suspect]
     Active Substance: PALBOCICLIB
     Indication: Lymphadenopathy
     Route: 048
  5. IBRANCE [Suspect]
     Active Substance: PALBOCICLIB
     Indication: Oestrogen receptor assay positive
  6. IBRANCE [Suspect]
     Active Substance: PALBOCICLIB
     Indication: Metastases to liver
  7. IBRANCE [Suspect]
     Active Substance: PALBOCICLIB
     Indication: Bile duct cancer

REACTIONS (2)
  - Full blood count decreased [Unknown]
  - Platelet count decreased [Unknown]
